FAERS Safety Report 18718073 (Version 1)
Quarter: 2021Q1

REPORT INFORMATION
  Report Type: Spontaneous
  Country: US (occurrence: US)
  Receive Date: 20210108
  Receipt Date: 20210108
  Transmission Date: 20210419
  Serious: Yes (Hospitalization, Other)
  Sender: FDA-Public Use
  Company Number: US-ELI_LILLY_AND_COMPANY-US202012013569

PATIENT
  Sex: Male

DRUGS (2)
  1. LEVEMIR [Concomitant]
     Active Substance: INSULIN DETEMIR
     Indication: DIABETES MELLITUS
  2. TRULICITY [Suspect]
     Active Substance: DULAGLUTIDE
     Indication: DIABETES MELLITUS
     Dosage: 0.75 MG, UNKNOWN
     Route: 065

REACTIONS (8)
  - Dyspnoea [Unknown]
  - Myocardial infarction [Unknown]
  - Decreased appetite [Unknown]
  - Incorrect dose administered [Unknown]
  - Nausea [Unknown]
  - Nephrolithiasis [Recovering/Resolving]
  - Dizziness [Unknown]
  - Overweight [Unknown]
